FAERS Safety Report 8847796 (Version 1)
Quarter: 2012Q4

REPORT INFORMATION
  Report Type: 
  Country: US (occurrence: US)
  Receive Date: 20121018
  Receipt Date: 20121018
  Transmission Date: 20130627
  Serious: Yes (Other)
  Sender: FDA-Public Use
  Company Number: US-009507513-1210USA002614

PATIENT
  Sex: Female

DRUGS (11)
  1. PRINIVIL [Suspect]
     Indication: HYPERTENSION
     Route: 048
  2. PRINIVIL [Suspect]
     Indication: HYPERTENSION
  3. AMPYRA [Suspect]
     Indication: PRODUCT USED FOR UNKNOWN INDICATION
     Dosage: 10 mg, q12h
     Route: 048
     Dates: start: 20120524
  4. DETROL LA [Concomitant]
     Dosage: UNK
     Dates: start: 20120524
  5. SYNTHROID [Concomitant]
  6. GABAPENTIN [Concomitant]
  7. BACLOFEN [Concomitant]
  8. CELEXA [Concomitant]
  9. VITAMIN D (UNSPECIFIED) [Concomitant]
  10. CYANOCOBALAMIN [Concomitant]
  11. OXYBUTYNIN [Concomitant]

REACTIONS (10)
  - Multiple sclerosis relapse [Unknown]
  - Fall [Unknown]
  - Anxiety [Unknown]
  - Depression [Unknown]
  - Scratch [Unknown]
  - Blood cortisol increased [Unknown]
  - Pollakiuria [Unknown]
  - Back pain [Unknown]
  - Palpitations [Unknown]
  - Rash [Unknown]
